FAERS Safety Report 5699238-5 (Version None)
Quarter: 2008Q2

REPORT INFORMATION
  Report Type: 
  Country: None (occurrence: None)
  Receive Date: 20080407
  Receipt Date: 20080407
  Transmission Date: 20081010
  Serious: Yes (Death)
  Sender: FDA-Public Use
  Company Number: None

PATIENT
  Age: 71 Year
  Sex: Male

DRUGS (14)
  1. PACLITAXEL [Suspect]
     Indication: GASTRIC CANCER
     Dosage: 85MG/M2/CYCLE IV
     Route: 042
     Dates: start: 20080122
  2. PTK767/ZK222584 [Suspect]
     Indication: GASTRIC CANCER
     Dosage: 500 MG DAILY ORAL
     Route: 048
     Dates: start: 20080126, end: 20080210
  3. ALLOPURINOL [Concomitant]
  4. AMBIEN [Concomitant]
  5. ATENOLOL [Concomitant]
  6. LASIX [Concomitant]
  7. LEVOFLOXACIN [Concomitant]
  8. MIRALAX [Concomitant]
  9. MULTI-VITAMIN [Concomitant]
  10. OXYGEN NASAL CANULA [Concomitant]
  11. PROCARDIA [Concomitant]
  12. TRIAMTERENE [Concomitant]
  13. ZANTAC [Concomitant]
  14. ZOFRAN [Concomitant]

REACTIONS (4)
  - ANAEMIA [None]
  - BILIARY TRACT DISORDER [None]
  - GASTROINTESTINAL HAEMORRHAGE [None]
  - INTESTINAL PERFORATION [None]
